FAERS Safety Report 24845886 (Version 4)
Quarter: 2025Q1

REPORT INFORMATION
  Report Type: Spontaneous
  Country: US (occurrence: US)
  Receive Date: 20250115
  Receipt Date: 20250203
  Transmission Date: 20250409
  Serious: Yes (Death, Other)
  Sender: SANOFI AVENTIS
  Company Number: US-SANOFI-02370419

PATIENT
  Age: 1 Year
  Sex: Male
  Weight: 16.33 kg

DRUGS (5)
  1. DUPIXENT [Suspect]
     Active Substance: DUPILUMAB
     Indication: Eczema
     Dates: start: 20240301
  2. DUPIXENT [Suspect]
     Active Substance: DUPILUMAB
     Indication: Dermatitis atopic
     Dosage: 200 MG, Q4W
     Route: 058
     Dates: start: 202403
  3. DUPIXENT [Suspect]
     Active Substance: DUPILUMAB
     Indication: Dermatitis atopic
     Dosage: 300 MG, Q4W
     Route: 058
     Dates: start: 20241001
  4. TRIAMCINOLONE [Concomitant]
     Active Substance: TRIAMCINOLONE
  5. MUPIROCIN [Concomitant]
     Active Substance: MUPIROCIN
     Indication: Eczema impetiginous

REACTIONS (7)
  - Pneumonia parainfluenzae viral [Fatal]
  - Pneumonia respiratory syncytial viral [Fatal]
  - Rhinovirus infection [Fatal]
  - Enterovirus infection [Fatal]
  - Brain injury [Fatal]
  - Ischaemia [Fatal]
  - Dermatitis atopic [Unknown]

NARRATIVE: CASE EVENT DATE: 20240101
